FAERS Safety Report 7378724-6 (Version None)
Quarter: 2011Q1

REPORT INFORMATION
  Report Type: 
  Country: None (occurrence: None)
  Receive Date: 20110328
  Receipt Date: 20110324
  Transmission Date: 20110831
  Serious: Yes (Death)
  Sender: FDA-Public Use
  Company Number: JP-EISAI INC-E2020-08836-SPO-JP

PATIENT
  Age: 85 Year
  Sex: Male

DRUGS (6)
  1. BASEN [Concomitant]
     Indication: DIABETES MELLITUS
  2. JANUVIA [Concomitant]
     Dates: start: 20101214
  3. BLOPRESS [Concomitant]
  4. ARICEPT [Suspect]
     Indication: DEMENTIA ALZHEIMER'S TYPE
     Route: 048
     Dates: start: 20101130
  5. JUVELA [Concomitant]
     Route: 048
  6. GLIMICRON [Concomitant]

REACTIONS (1)
  - SUDDEN DEATH [None]
